FAERS Safety Report 6111459-6 (Version None)
Quarter: 2009Q1

REPORT INFORMATION
  Report Type: 
  Country: None (occurrence: None)
  Receive Date: 20090311
  Receipt Date: 20090303
  Transmission Date: 20090719
  Serious: Yes (Hospitalization)
  Sender: FDA-Public Use
  Company Number: GB-ROCHE-613871

PATIENT
  Sex: Female
  Weight: 89 kg

DRUGS (22)
  1. ORLISTAT [Suspect]
     Indication: OBESITY
     Route: 048
     Dates: start: 20080908
  2. ORLISTAT [Suspect]
     Route: 048
  3. ISOTARD [Concomitant]
     Route: 048
     Dates: start: 20030101
  4. ZAFIRLUKAST [Concomitant]
     Indication: ASTHMA
     Route: 048
     Dates: start: 20070101
  5. NICORANDIL [Concomitant]
     Route: 048
     Dates: start: 20070101
  6. PERINDOPRIL ERBUMINE [Concomitant]
     Indication: HYPERTENSION
     Route: 048
     Dates: start: 20070101
  7. ATORVASTATIN [Concomitant]
     Route: 048
     Dates: start: 20020101
  8. EZETIMIBE [Concomitant]
     Route: 048
     Dates: start: 20040101
  9. CITALOPRAM [Concomitant]
     Indication: SEASONAL AFFECTIVE DISORDER
     Route: 048
     Dates: start: 20070101
  10. LORATADINE [Concomitant]
     Route: 048
     Dates: start: 20010101
  11. FRUSEMIDE [Concomitant]
     Indication: FLUID RETENTION
     Route: 048
     Dates: start: 20010101
  12. GLUCOSAMINE [Concomitant]
     Route: 048
     Dates: start: 20070101
  13. DILTIAZEM [Concomitant]
     Route: 048
     Dates: start: 20010101
  14. CLOPIDOGREL [Concomitant]
     Indication: THROMBOSIS PROPHYLAXIS
     Route: 048
     Dates: start: 20010101
  15. ADCAL D3 [Concomitant]
     Indication: OSTEOPOROSIS
     Route: 048
     Dates: start: 20070101
  16. ALENDRONIC ACID [Concomitant]
     Indication: OSTEOPOROSIS
     Route: 048
     Dates: start: 20070101
  17. NITROGLYCERIN [Concomitant]
     Indication: ANGINA PECTORIS
     Dosage: FREQUENCY: AS REQUIRED
     Route: 060
     Dates: start: 20010101
  18. IPRATROPIUM BROMIDE [Concomitant]
     Indication: ASTHMA
     Dosage: ROUTE: INHALED
     Route: 055
     Dates: start: 20070101
  19. VENTOLIN [Concomitant]
     Indication: ASTHMA
     Dosage: ROUTE: INHALED
     Route: 055
     Dates: start: 20070101
  20. SEREVENT [Concomitant]
     Indication: ASTHMA
     Dosage: ROUTE: INHALED
     Route: 055
     Dates: start: 20020101
  21. FLUTICASONE PROPIONATE [Concomitant]
     Indication: ASTHMA
     Dosage: ROUTE: INHALED
     Route: 055
     Dates: start: 20020101
  22. CEFALEXIN [Concomitant]
     Route: 048

REACTIONS (2)
  - ASTHMA [None]
  - CARDIAC DISORDER [None]
